FAERS Safety Report 8208097 (Version 3)
Quarter: 2014Q1

REPORT INFORMATION
  Report Type: Spontaneous
  Country: US (occurrence: US)
  Receive Date: 20111028
  Receipt Date: 20140115
  Transmission Date: 20141002
  Serious: Yes (Other)
  Sender: FDA-Public Use
  Company Number: US-BAYER-2011-101716

PATIENT
  Age: 18 Year
  Sex: Female
  Weight: 57.6 kg

DRUGS (16)
  1. YAZ [Suspect]
     Indication: PREMENSTRUAL SYNDROME
     Dosage: UNK
     Dates: start: 2006, end: 201012
  2. YAZ [Suspect]
     Indication: PREMENSTRUAL DYSPHORIC DISORDER
  3. YAZ [Suspect]
     Indication: OVARIAN CYST
  4. YASMIN [Suspect]
     Indication: PREMENSTRUAL SYNDROME
     Dosage: UNK
     Dates: start: 2006, end: 201012
  5. YASMIN [Suspect]
     Indication: PREMENSTRUAL DYSPHORIC DISORDER
  6. YASMIN [Suspect]
     Indication: OVARIAN CYST
  7. OCELLA [Suspect]
     Indication: PREMENSTRUAL SYNDROME
     Dosage: UNK
     Dates: start: 2006, end: 201012
  8. OCELLA [Suspect]
     Indication: PREMENSTRUAL DYSPHORIC DISORDER
  9. OCELLA [Suspect]
     Indication: OVARIAN CYST
  10. CLARITIN [Concomitant]
     Indication: MULTIPLE ALLERGIES
     Dosage: UNK UNK, QD
     Route: 048
  11. MOTRIN [Concomitant]
     Indication: PAIN
     Dosage: UNK UNK, PRN
     Route: 048
  12. LOTEMAX [Concomitant]
     Dosage: OPHTHALMIC SUSPENSION
  13. AMOXICILLIN [Concomitant]
  14. PROMETHAZINE [Concomitant]
  15. TRAMADOL [Concomitant]
  16. ONDANSETRON [Concomitant]

REACTIONS (7)
  - Gallbladder non-functioning [None]
  - Cholecystitis chronic [None]
  - Injury [None]
  - Emotional distress [None]
  - Abdominal pain upper [None]
  - Cow^s milk intolerance [None]
  - Eating disorder [None]
